FAERS Safety Report 8730564 (Version 2)
Quarter: 2012Q4

REPORT INFORMATION
  Report Type: 
  Country: GB (occurrence: GB)
  Receive Date: 20120817
  Receipt Date: 20120927
  Transmission Date: 20130627
  Serious: Yes (Other)
  Sender: FDA-Public Use
  Company Number: GB-ALLERGAN-1210946US

PATIENT
  Age: 65 Year
  Sex: Female

DRUGS (5)
  1. OZURDEX [Suspect]
     Indication: MACULAR OEDEMA
     Dosage: 0.7 mg, single (injected at 4-monthly intervals)
     Route: 031
  2. ASPIRIN [Concomitant]
     Indication: HYPERTENSION
  3. ASPIRIN [Concomitant]
     Indication: HYPERLIPIDEMIA
  4. BISOPROLOL [Concomitant]
     Indication: HYPERTENSION
  5. SIMVASTATIN [Concomitant]
     Indication: HYPERLIPIDEMIA

REACTIONS (3)
  - Retinal tear [Recovering/Resolving]
  - Vitreous haemorrhage [Recovering/Resolving]
  - Cataract [Unknown]
